FAERS Safety Report 20546274 (Version 1)
Quarter: 2022Q1

REPORT INFORMATION
  Report Type: Spontaneous
  Country: US (occurrence: US)
  Receive Date: 20220303
  Receipt Date: 20220303
  Transmission Date: 20220423
  Serious: Yes (Other)
  Sender: FDA-Public Use
  Company Number: US-GLAXOSMITHKLINE-US2022GSK036411

PATIENT
  Sex: Male

DRUGS (21)
  1. ZANTAC [Suspect]
     Active Substance: RANITIDINE HYDROCHLORIDE
     Indication: Gastrooesophageal reflux disease
     Dosage: 75 MG, WE, 4-5 TIMES A WEEK
     Route: 065
     Dates: start: 201506, end: 201912
  2. ZANTAC [Suspect]
     Active Substance: RANITIDINE HYDROCHLORIDE
     Dosage: 150 MG, WE, 4-5 TIMES A WEEK
     Route: 065
     Dates: start: 201506, end: 201912
  3. ZANTAC [Suspect]
     Active Substance: RANITIDINE HYDROCHLORIDE
     Dosage: 300 MG, WE, 4-5 TIMES A WEEK
     Route: 065
     Dates: start: 201506, end: 201912
  4. ZANTAC [Suspect]
     Active Substance: RANITIDINE HYDROCHLORIDE
     Indication: Gastrooesophageal reflux disease
     Dosage: 75 MG, WE, 4-5 TIMES A WEEK
     Route: 065
     Dates: start: 201506, end: 201912
  5. ZANTAC [Suspect]
     Active Substance: RANITIDINE HYDROCHLORIDE
     Dosage: 150 MG, WE, 4-5 TIMES A WEEK
     Route: 065
     Dates: start: 201506, end: 201912
  6. ZANTAC [Suspect]
     Active Substance: RANITIDINE HYDROCHLORIDE
     Dosage: 300 MG, WE, 4-5 TIMES A WEEK
     Route: 065
     Dates: start: 201506, end: 201912
  7. RANITIDINE HYDROCHLORIDE [Suspect]
     Active Substance: RANITIDINE HYDROCHLORIDE
     Indication: Gastrooesophageal reflux disease
     Dosage: 75 MG, WE, 4-5 TIMES A WEEK
     Route: 065
     Dates: start: 201506, end: 201912
  8. RANITIDINE HYDROCHLORIDE [Suspect]
     Active Substance: RANITIDINE HYDROCHLORIDE
     Dosage: 150 MG, WE, 4-5 TIMES A WEEK
     Route: 065
     Dates: start: 201506, end: 201912
  9. RANITIDINE HYDROCHLORIDE [Suspect]
     Active Substance: RANITIDINE HYDROCHLORIDE
     Dosage: 300 MG, WE, 4-5 TIMES A WEEK
     Route: 065
     Dates: start: 201506, end: 201912
  10. RANITIDINE HYDROCHLORIDE [Suspect]
     Active Substance: RANITIDINE HYDROCHLORIDE
     Indication: Gastrooesophageal reflux disease
     Dosage: 75 MG, WE, 4-5 TIMES A WEEK
     Route: 065
     Dates: start: 201506, end: 201912
  11. RANITIDINE HYDROCHLORIDE [Suspect]
     Active Substance: RANITIDINE HYDROCHLORIDE
     Dosage: 150 MG, WE, 4-5 TIMES A WEEK
     Route: 065
     Dates: start: 201506, end: 201912
  12. RANITIDINE HYDROCHLORIDE [Suspect]
     Active Substance: RANITIDINE HYDROCHLORIDE
     Dosage: 300 MG, WE, 4-5 TIMES A WEEK
     Route: 065
     Dates: start: 201506, end: 201912
  13. ZANTAC [Suspect]
     Active Substance: RANITIDINE HYDROCHLORIDE
     Indication: Gastrooesophageal reflux disease
     Dosage: 75 MG, WE, 4-5 TIMES A WEEK
     Route: 065
     Dates: start: 201506, end: 201912
  14. ZANTAC [Suspect]
     Active Substance: RANITIDINE HYDROCHLORIDE
     Dosage: 150 MG, WE, 4-5 TIMES A WEEK
     Route: 065
     Dates: start: 201506, end: 201912
  15. ZANTAC [Suspect]
     Active Substance: RANITIDINE HYDROCHLORIDE
     Dosage: 300 MG, WE, 4-5 TIMES A WEEK
     Route: 065
     Dates: start: 201506, end: 201912
  16. RANITIDINE [Suspect]
     Active Substance: RANITIDINE
     Indication: Gastrooesophageal reflux disease
     Dosage: 75 MG, WE, 4-5 TIMES A WEEK
     Route: 065
     Dates: start: 201506, end: 201912
  17. RANITIDINE [Suspect]
     Active Substance: RANITIDINE
     Dosage: 150 MG, WE
     Route: 065
     Dates: start: 201506, end: 201912
  18. RANITIDINE [Suspect]
     Active Substance: RANITIDINE
     Dosage: 300 MG, WE, 4-5 TIMES A WEEK
     Route: 065
     Dates: start: 201506, end: 201912
  19. RANITIDINE [Suspect]
     Active Substance: RANITIDINE
     Indication: Gastrooesophageal reflux disease
     Dosage: 75 MG, WE, 4-5 TIMES A WEEK
     Route: 065
     Dates: start: 201506, end: 201912
  20. RANITIDINE [Suspect]
     Active Substance: RANITIDINE
     Dosage: 150 MG, WE, 4-5 TIMES A WEEK
     Route: 065
     Dates: start: 201506, end: 201912
  21. RANITIDINE [Suspect]
     Active Substance: RANITIDINE
     Dosage: 300 MG, WE, 4-5 TIMES A WEEK
     Route: 065
     Dates: start: 201506, end: 201912

REACTIONS (1)
  - Prostate cancer [Unknown]
